FAERS Safety Report 8571776-7 (Version None)
Quarter: 2012Q3

REPORT INFORMATION
  Report Type: 
  Country: None (occurrence: None)
  Receive Date: 20120806
  Receipt Date: 20120730
  Transmission Date: 20120928
  Serious: Yes (Other)
  Sender: FDA-Public Use
  Company Number: US-JNJFOC-20120708927

PATIENT
  Age: 82 Year
  Sex: Female

DRUGS (2)
  1. LISTERINE MOUTHWASH COOLMINT [Suspect]
     Indication: DENTAL DISORDER PROPHYLAXIS
     Dosage: ABOUT A TEASPOOON
     Route: 048
     Dates: end: 20120723
  2. UNKNOWN MEDICATION [Concomitant]
     Route: 065

REACTIONS (1)
  - DENTAL CARIES [None]
